FAERS Safety Report 9469363 (Version 1)
Quarter: 2013Q3

REPORT INFORMATION
  Report Type: Spontaneous
  Country: CH (occurrence: CH)
  Receive Date: 20130821
  Receipt Date: 20130821
  Transmission Date: 20140515
  Serious: Yes (Other)
  Sender: FDA-Public Use
  Company Number: CH-WATSON-2013-15109

PATIENT
  Age: 34 Year
  Sex: Female

DRUGS (7)
  1. OMEPRAZOLE (UNKNOWN) [Suspect]
     Indication: PRODUCT USED FOR UNKNOWN INDICATION
     Dosage: 20 MG, DAILY
     Route: 065
  2. GABAPENTIN (UNKNOWN) [Suspect]
     Indication: MYOTONIA
     Dosage: 800 MG, QID
     Route: 065
  3. PREDNISONE (UNKNOWN) [Suspect]
     Indication: MYOTONIA
     Dosage: 10 MG, DAILY
     Route: 065
  4. AZATHIOPRINE (UNKNOWN) [Suspect]
     Indication: MYOTONIA
     Dosage: 125 MG, DAILY
     Route: 065
     Dates: end: 20120118
  5. CYMBALTA [Suspect]
     Indication: DEPRESSION
     Dosage: 60 MG, DAILY
     Route: 065
  6. PHENYTOIN (AMALLC) [Suspect]
     Indication: MYOTONIA
     Dosage: 350 MG, DAILY
     Route: 065
  7. CALCIMAGON-D 3 [Concomitant]
     Indication: PRODUCT USED FOR UNKNOWN INDICATION
     Dosage: 500 MG, DAILY
     Route: 065
     Dates: end: 20120118

REACTIONS (2)
  - Abortion induced [Recovered/Resolved]
  - Maternal exposure during pregnancy [Recovered/Resolved]
